FAERS Safety Report 8604604-1 (Version None)
Quarter: 2012Q3

REPORT INFORMATION
  Report Type: 
  Country: None (occurrence: None)
  Receive Date: 20120820
  Receipt Date: 20120809
  Transmission Date: 20120928
  Serious: Yes (Hospitalization)
  Sender: FDA-Public Use
  Company Number: US-BAYER-2012-039401

PATIENT
  Age: 37 Year
  Sex: Female
  Weight: 61 kg

DRUGS (6)
  1. STOOL SOFTENER [Concomitant]
  2. PRILOSEC [Concomitant]
  3. YASMIN [Suspect]
     Indication: PREMENSTRUAL SYNDROME
     Dosage: UNK
     Dates: start: 20080901, end: 20090801
  4. YASMIN [Suspect]
  5. PERCOCET [Concomitant]
  6. PHENERGAN HCL [Concomitant]

REACTIONS (7)
  - MALAISE [None]
  - MENTAL DISORDER [None]
  - WEIGHT DECREASED [None]
  - BILIARY DYSKINESIA [None]
  - CHOLECYSTECTOMY [None]
  - INJURY [None]
  - PAIN [None]
